FAERS Safety Report 18507268 (Version 3)
Quarter: 2021Q2

REPORT INFORMATION
  Report Type: Spontaneous
  Country: US (occurrence: US)
  Receive Date: 20201116
  Receipt Date: 20210428
  Transmission Date: 20210717
  Serious: Yes (Other)
  Sender: FDA-Public Use
  Company Number: US-KYOWAKIRIN-2020BKK018905

PATIENT

DRUGS (1)
  1. NOURIANZ [Suspect]
     Active Substance: ISTRADEFYLLINE
     Indication: PARKINSON^S DISEASE
     Dosage: 20 MG DAILY
     Route: 048
     Dates: start: 20200410

REACTIONS (8)
  - Mobility decreased [Unknown]
  - Anxiety [Unknown]
  - Condition aggravated [Unknown]
  - Decreased activity [Not Recovered/Not Resolved]
  - Hip arthroplasty [Recovered/Resolved]
  - Irritability [Unknown]
  - Insomnia [Unknown]
  - Therapy partial responder [Not Recovered/Not Resolved]

NARRATIVE: CASE EVENT DATE: 2020
